FAERS Safety Report 10280146 (Version 2)
Quarter: 2014Q3

REPORT INFORMATION
  Report Type: Spontaneous
  Country: US (occurrence: None)
  Receive Date: 20140702
  Receipt Date: 20140711
  Transmission Date: 20150326
  Serious: Yes (Other)
  Sender: FDA-Public Use
  Company Number: 20140370

PATIENT

DRUGS (2)
  1. EPINEPHRINE INJECTION, USP (1071-25) 1 MG/ML [Suspect]
     Active Substance: EPINEPHRINE
     Indication: SURGERY
     Dosage: INFUSION PUMP
     Route: 042
  2. EPINEPHRINE INJECTION, USP (1071-25) 1 MG/ML [Suspect]
     Active Substance: EPINEPHRINE
     Indication: THERMAL BURN
     Dosage: INFUSION PUMP
     Route: 042

REACTIONS (1)
  - Carpal tunnel syndrome [None]
